FAERS Safety Report 7131542-6 (Version None)
Quarter: 2010Q4

REPORT INFORMATION
  Report Type: 
  Country: None (occurrence: None)
  Receive Date: 20101201
  Receipt Date: 20101122
  Transmission Date: 20110411
  Serious: Yes (Hospitalization, Other)
  Sender: FDA-Public Use
  Company Number: IL-ABBOTT-10P-082-0687514-00

PATIENT
  Age: 11 Month
  Sex: Male

DRUGS (8)
  1. VALPROIC ACID [Suspect]
     Indication: MYOCLONIC EPILEPSY
  2. VALPROIC ACID [Suspect]
     Indication: PARTIAL SEIZURES
  3. VALPROIC ACID [Suspect]
     Indication: CONVULSION
  4. ACETAMINOPHEN [Suspect]
     Indication: PRODUCT USED FOR UNKNOWN INDICATION
     Dosage: SEVERAL TIMES IN STANDARD DOSES
  5. CLONAZEPAM [Concomitant]
     Indication: PRODUCT USED FOR UNKNOWN INDICATION
  6. BENZODIAZEPINE RELATED DRUGS [Concomitant]
     Indication: PRODUCT USED FOR UNKNOWN INDICATION
  7. DIPHENYLHYDANTOIN [Concomitant]
     Indication: PRODUCT USED FOR UNKNOWN INDICATION
  8. PHENOBARBITAL [Concomitant]
     Indication: PRODUCT USED FOR UNKNOWN INDICATION
     Dosage: LOADING

REACTIONS (4)
  - ACUTE HEPATIC FAILURE [None]
  - BRAIN INJURY [None]
  - COMA HEPATIC [None]
  - HYPERAMMONAEMIA [None]
